FAERS Safety Report 6176045-0 (Version None)
Quarter: 2009Q2

REPORT INFORMATION
  Report Type: 
  Country: None (occurrence: None)
  Receive Date: 20090501
  Receipt Date: 20090424
  Transmission Date: 20091009
  Serious: Yes (Life-Threatening, Other)
  Sender: FDA-Public Use
  Company Number: CN-ROCHE-629471

PATIENT
  Age: 60 Year
  Sex: Male
  Weight: 60 kg

DRUGS (8)
  1. PEGASYS [Suspect]
     Indication: HEPATITIS C
     Route: 065
     Dates: start: 20080401
  2. MABTHERA [Suspect]
     Indication: MANTLE CELL LYMPHOMA
     Dosage: 6 REGIMENS.
     Route: 041
     Dates: start: 20080801, end: 20081226
  3. MABTHERA [Suspect]
     Dosage: DOSING REGIMEN: 600MG/3 WEEKS
     Route: 041
     Dates: start: 20090319
  4. CHOP REGIMEN [Suspect]
     Indication: MANTLE CELL LYMPHOMA
     Dosage: 6 REGIMENS.
     Route: 065
     Dates: start: 20080801, end: 20081226
  5. ICE REGIMEN [Suspect]
     Indication: MANTLE CELL LYMPHOMA
     Route: 041
     Dates: start: 20090320
  6. RIBAVIRIN [Suspect]
     Indication: HEPATITIS C
     Route: 065
     Dates: start: 20080401
  7. NEUPOGEN [Concomitant]
  8. THROMBOPOIETIN [Concomitant]

REACTIONS (5)
  - LYMPHOMA [None]
  - PLATELET COUNT DECREASED [None]
  - PYREXIA [None]
  - RED BLOOD CELL COUNT DECREASED [None]
  - WHITE BLOOD CELL COUNT DECREASED [None]
